FAERS Safety Report 7782957-4 (Version None)
Quarter: 2011Q3

REPORT INFORMATION
  Report Type: 
  Country: None (occurrence: None)
  Receive Date: 20110927
  Receipt Date: 20110927
  Transmission Date: 20111222
  Serious: No
  Sender: FDA-Public Use
  Company Number: None

PATIENT
  Age: 78 Year
  Sex: Female

DRUGS (1)
  1. SIMPONI [Suspect]
     Dosage: SIMPONI 50MG Q 28 DA SQ
     Route: 058
     Dates: start: 20110201, end: 20110901

REACTIONS (6)
  - ONYCHOMADESIS [None]
  - DRY SKIN [None]
  - CONTUSION [None]
  - TINNITUS [None]
  - PRURITUS [None]
  - INFECTION [None]
